FAERS Safety Report 7245214-0 (Version None)
Quarter: 2011Q1

REPORT INFORMATION
  Report Type: 
  Country: None (occurrence: None)
  Receive Date: 20110126
  Receipt Date: 20110119
  Transmission Date: 20110831
  Serious: Yes (Hospitalization, Other)
  Sender: FDA-Public Use
  Company Number: PHEH2003US11069

PATIENT
  Sex: Female

DRUGS (52)
  1. ZOMETA [Suspect]
     Dosage: EVERY 3 MONTHS
  2. ESOMEPRAZOLE [Concomitant]
  3. ASPIRIN [Concomitant]
  4. LIDOCAINE HYDROCHLORIDE IN PLASTIC CONTAINER [Concomitant]
     Route: 062
  5. LIPITOR [Concomitant]
  6. CLINDAMYCIN [Concomitant]
  7. REVLIMID [Concomitant]
  8. AREDIA [Suspect]
     Indication: MULTIPLE MYELOMA
     Dosage: 90 MG, MONTHLY
     Route: 042
     Dates: start: 19950101, end: 20020101
  9. DIAZEPAM [Concomitant]
  10. CHEMOTHERAPEUTICS NOS [Concomitant]
  11. ARICEPT [Concomitant]
  12. CLONAZEPAM [Concomitant]
     Route: 048
  13. ZOFRAN [Concomitant]
     Dosage: 4 MG, Q6H
     Route: 042
  14. PROCARDIA [Concomitant]
     Dosage: 30 MG
     Route: 048
  15. ADALAT [Concomitant]
     Dosage: 30 MG
     Route: 048
  16. COSOPT [Concomitant]
  17. HYZAAR [Concomitant]
  18. DEXAMETHASONE [Concomitant]
  19. LEVAQUIN [Concomitant]
  20. NEURONTIN [Concomitant]
     Dosage: 600 MG, TID
  21. PRILOSEC [Concomitant]
  22. CYMBALTA [Concomitant]
  23. RESTORIL [Concomitant]
     Dosage: 15 MG, HS, PRN
     Route: 048
  24. PROTONIX [Concomitant]
  25. ARIMIDEX [Concomitant]
  26. KYTRIL [Concomitant]
  27. COZAAR [Concomitant]
     Dosage: 50 MG, BID
     Route: 048
  28. VIOXX [Concomitant]
  29. ALLOPURINOL [Concomitant]
  30. PENICILLIN ^GRUNENTHAL^ [Concomitant]
  31. PERIDEX [Concomitant]
  32. LEVOTHYROXINE SODIUM [Concomitant]
  33. CEFTIN [Concomitant]
     Dosage: 250 MG
     Route: 048
  34. ADALAT [Concomitant]
     Dosage: 60 MG
     Route: 048
  35. PREMARIN [Concomitant]
  36. PREDNISONE [Concomitant]
     Dosage: UNK
  37. ERYTHROMYCIN [Concomitant]
  38. SINEQUAN [Concomitant]
  39. NEXIUM [Concomitant]
  40. ANZEMET [Concomitant]
     Dosage: 12.5 MG, PRN
  41. HYDROCHLOROTHIAZIDE [Concomitant]
  42. ESTROGENS CONJUGATED [Concomitant]
  43. PROZAC [Concomitant]
  44. AROMASIN [Concomitant]
     Dosage: UNK, ONCE
  45. CELEXA [Concomitant]
  46. CARDIZEM [Concomitant]
  47. VASOTEC [Concomitant]
     Dosage: 1.25 MG, PRN
     Route: 048
  48. TRAVATAN [Concomitant]
  49. ZOMETA [Suspect]
     Indication: MULTIPLE MYELOMA
     Dosage: 4 MG EVERY MONTH
     Route: 042
     Dates: start: 20020101, end: 20060901
  50. ALKERAN [Concomitant]
  51. PEPCID [Concomitant]
     Dosage: 20 MG, BID
     Route: 048
  52. LOVENOX [Concomitant]
     Dosage: 30 MG, Q12H
     Route: 058

REACTIONS (89)
  - DIVERTICULUM INTESTINAL [None]
  - SPINAL OSTEOARTHRITIS [None]
  - DISORIENTATION [None]
  - BRONCHITIS [None]
  - DYSPNOEA EXERTIONAL [None]
  - ROSACEA [None]
  - TENDONITIS [None]
  - CORONARY ARTERY DISEASE [None]
  - ONYCHOMYCOSIS [None]
  - CONFUSIONAL STATE [None]
  - UROSEPSIS [None]
  - MALAISE [None]
  - NOCTURIA [None]
  - TRICUSPID VALVE INCOMPETENCE [None]
  - SKIN PAPILLOMA [None]
  - CONSTIPATION [None]
  - BURSITIS [None]
  - BACK PAIN [None]
  - OSTEOMYELITIS [None]
  - BONE DISORDER [None]
  - EMOTIONAL DISTRESS [None]
  - PAIN [None]
  - MENTAL STATUS CHANGES [None]
  - SPEECH DISORDER [None]
  - NEOPLASM MALIGNANT [None]
  - AMNESIA [None]
  - DIARRHOEA [None]
  - HYPERPARATHYROIDISM [None]
  - HYPOACUSIS [None]
  - GINGIVAL BLEEDING [None]
  - BLADDER CANCER RECURRENT [None]
  - CATARACT [None]
  - SPINAL HAEMANGIOMA [None]
  - BLOOD PRESSURE INCREASED [None]
  - CHILLS [None]
  - FALL [None]
  - ANGINA PECTORIS [None]
  - CHEST PAIN [None]
  - AORTIC ARTERIOSCLEROSIS [None]
  - INGROWING NAIL [None]
  - DEFORMITY [None]
  - BENIGN COLONIC NEOPLASM [None]
  - GLAUCOMA [None]
  - FEMUR FRACTURE [None]
  - RADICULOPATHY [None]
  - POOR QUALITY SLEEP [None]
  - URINE ODOUR ABNORMAL [None]
  - FATIGUE [None]
  - CARDIOMEGALY [None]
  - PAIN IN EXTREMITY [None]
  - LEUKOPENIA [None]
  - SWELLING [None]
  - SPINAL COLUMN STENOSIS [None]
  - URINARY INCONTINENCE [None]
  - ARTHRALGIA [None]
  - DIABETES MELLITUS [None]
  - NEPHROLITHIASIS [None]
  - GAIT DISTURBANCE [None]
  - ROTATOR CUFF SYNDROME [None]
  - ALOPECIA [None]
  - ABSCESS JAW [None]
  - IMPAIRED HEALING [None]
  - RECTAL HAEMORRHAGE [None]
  - TRANSIENT ISCHAEMIC ATTACK [None]
  - URINARY TRACT INFECTION [None]
  - POLLAKIURIA [None]
  - PYREXIA [None]
  - HYPERCALCAEMIA [None]
  - HIP FRACTURE [None]
  - UTERINE CANCER [None]
  - CAROTID ARTERY STENOSIS [None]
  - EROSIVE OESOPHAGITIS [None]
  - SINUS CONGESTION [None]
  - COGNITIVE DISORDER [None]
  - EYELID PTOSIS [None]
  - OSTEOPENIA [None]
  - OSTEONECROSIS OF JAW [None]
  - HYPOPHAGIA [None]
  - ANXIETY [None]
  - PURULENT DISCHARGE [None]
  - INJURY [None]
  - INTERVERTEBRAL DISC DEGENERATION [None]
  - CARPAL TUNNEL SYNDROME [None]
  - PULMONARY HYPERTENSION [None]
  - PALPITATIONS [None]
  - ASTHENIA [None]
  - DIZZINESS [None]
  - HYPERLIPIDAEMIA [None]
  - HYPERKERATOSIS [None]
